FAERS Safety Report 25640017 (Version 2)
Quarter: 2025Q3

REPORT INFORMATION
  Report Type: Report from Study
  Country: JP (occurrence: JP)
  Receive Date: 20250804
  Receipt Date: 20250825
  Transmission Date: 20251021
  Serious: Yes (Hospitalization)
  Sender: ABBVIE
  Company Number: JP-ABBVIE-6274148

PATIENT
  Age: 61 Year
  Sex: Female

DRUGS (5)
  1. VYALEV [Suspect]
     Active Substance: FOSCARBIDOPA\FOSLEVODOPA
     Indication: Parkinson^s disease
     Route: 058
     Dates: start: 20250415
  2. VYALEV [Suspect]
     Active Substance: FOSCARBIDOPA\FOSLEVODOPA
     Route: 058
  3. CARBIDOPA, LEVODOPA AND ENTACAPONE [Concomitant]
     Active Substance: CARBIDOPA\ENTACAPONE\LEVODOPA
     Indication: Parkinson^s disease
     Dosage: 4 TABLET, 0.5 MG 4 TIMES A DAY, AROUND THE SAME TIME EACH DAY.
     Route: 048
  4. CARBIDOPA, LEVODOPA AND ENTACAPONE [Concomitant]
     Active Substance: CARBIDOPA\ENTACAPONE\LEVODOPA
     Indication: Parkinson^s disease
     Route: 048
  5. CARBIDOPA AND LEVODOPA [Concomitant]
     Active Substance: CARBIDOPA\LEVODOPA
     Indication: Parkinson^s disease

REACTIONS (32)
  - Hallucination [Recovered/Resolved]
  - Abdominal distension [Unknown]
  - Mobility decreased [Unknown]
  - Poor quality sleep [Unknown]
  - Infusion site discharge [Unknown]
  - Thirst [Unknown]
  - Musculoskeletal stiffness [Unknown]
  - Infusion site induration [Unknown]
  - Dry throat [Unknown]
  - Oropharyngeal discomfort [Unknown]
  - Consciousness fluctuating [Unknown]
  - Fatigue [Unknown]
  - Infusion site reaction [Recovered/Resolved]
  - Eructation [Unknown]
  - Device issue [Unknown]
  - On and off phenomenon [Unknown]
  - Infusion site mass [Unknown]
  - Gastric pH decreased [Unknown]
  - Dyskinesia [Unknown]
  - Malaise [Unknown]
  - Infusion site discolouration [Unknown]
  - Abdominal distension [Unknown]
  - Vomiting [Unknown]
  - Therapeutic product effect variable [Unknown]
  - Weight decreased [Unknown]
  - Nausea [Unknown]
  - Throat irritation [Unknown]
  - Dysgeusia [Unknown]
  - Incorrect dose administered [Unknown]
  - Malaise [Unknown]
  - Malaise [Recovered/Resolved]
  - Malaise [Recovered/Resolved]

NARRATIVE: CASE EVENT DATE: 20250101
